FAERS Safety Report 7493233-1 (Version None)
Quarter: 2011Q2

REPORT INFORMATION
  Report Type: 
  Country: None (occurrence: None)
  Receive Date: 20110520
  Receipt Date: 20110513
  Transmission Date: 20111010
  Serious: Yes (Other)
  Sender: FDA-Public Use
  Company Number: US-TYCO HEALTHCARE/MALLINCKRODT-T201100972

PATIENT
  Sex: Male

DRUGS (1)
  1. OPTIRAY 300 [Suspect]
     Indication: COMPUTERISED TOMOGRAM ABDOMEN
     Dosage: 100 ML, SINGLE
     Route: 042
     Dates: start: 20110512, end: 20110512

REACTIONS (6)
  - PRURITUS [None]
  - URTICARIA [None]
  - EYE SWELLING [None]
  - THROAT TIGHTNESS [None]
  - UPPER RESPIRATORY TRACT CONGESTION [None]
  - OCULAR HYPERAEMIA [None]
